FAERS Safety Report 8743659 (Version 6)
Quarter: 2012Q4

REPORT INFORMATION
  Report Type: 
  Country: JP (occurrence: JP)
  Receive Date: 20120824
  Receipt Date: 20121005
  Transmission Date: 20130627
  Serious: Yes (Death, Life-Threatening, Hospitalization)
  Sender: FDA-Public Use
  Company Number: JP-B.I. PHARMACEUTICALS,INC./RIDGEFIELD-2012-BP-20366NB

PATIENT
  Age: 98 Year
  Sex: Female
  Weight: 47 kg

DRUGS (7)
  1. PRAZAXA [Suspect]
     Indication: ATRIAL FIBRILLATION
     Dosage: 220 mg
     Route: 048
     Dates: start: 20110701, end: 20120414
  2. FUROSEMIDE [Concomitant]
     Indication: HYPERTENSION
     Dosage: 10 mg
     Route: 048
     Dates: start: 20110701
  3. ZYLORIC [Concomitant]
     Indication: GOUT
     Dosage: 200 mg
     Route: 048
     Dates: start: 20111029
  4. BIO-THREE [Concomitant]
     Indication: COLITIS
     Route: 048
  5. LASIX [Concomitant]
     Indication: OEDEMA
     Dosage: 20 mg
     Route: 048
  6. FORSENID [Concomitant]
     Indication: CONSTIPATION
     Dosage: 12 mg
     Route: 048
     Dates: start: 20120409
  7. MEDET [Concomitant]
     Indication: DIABETES MELLITUS
     Dosage: 250 mg
     Route: 048
     Dates: start: 20120421

REACTIONS (3)
  - Multi-organ failure [Fatal]
  - Small intestinal haemorrhage [Fatal]
  - Anaemia [Not Recovered/Not Resolved]
